FAERS Safety Report 25836872 (Version 2)
Quarter: 2025Q4

REPORT INFORMATION
  Report Type: Report from Study
  Country: EU (occurrence: EU)
  Receive Date: 20250923
  Receipt Date: 20251120
  Transmission Date: 20260117
  Serious: No
  Sender: PFIZER
  Company Number: EU-DSJP-DS-2025-164170-AT

PATIENT
  Age: 65 Year
  Sex: Female
  Weight: 52 kg

DRUGS (30)
  1. BEVACIZUMAB [Suspect]
     Active Substance: BEVACIZUMAB
     Indication: Chemotherapy
     Dosage: UNK
     Dates: start: 20250627
  2. ENHERTU [Suspect]
     Active Substance: FAM-TRASTUZUMAB DERUXTECAN-NXKI
     Indication: HER2 low breast cancer
     Dosage: UNK
  3. ENHERTU [Suspect]
     Active Substance: FAM-TRASTUZUMAB DERUXTECAN-NXKI
     Indication: Breast cancer metastatic
  4. PACLITAXEL [Suspect]
     Active Substance: PACLITAXEL
     Indication: Chemotherapy
     Dosage: UNK
     Dates: start: 20250627
  5. EDOXABAN TOSYLATE [Concomitant]
     Active Substance: EDOXABAN TOSYLATE
     Indication: Prophylaxis
     Dosage: 30 MG, QD (DAILY)
     Dates: start: 2025
  6. PANTOPRAZOLE [Concomitant]
     Active Substance: PANTOPRAZOLE
     Indication: Prophylaxis
     Dosage: 40 MG, QD (DAILY)
     Dates: start: 2025
  7. PREDNISOLONE [Concomitant]
     Active Substance: PREDNISOLONE
     Indication: Immunomodulatory therapy
     Dosage: 2.5 MG, QD (DAILY)
     Dates: start: 20250626, end: 20250731
  8. PREDNISOLONE [Concomitant]
     Active Substance: PREDNISOLONE
     Dosage: 1.25 MG, QD (DAILY)
     Dates: start: 20250731, end: 20250808
  9. BISOPROLOL FUMARATE [Concomitant]
     Active Substance: BISOPROLOL FUMARATE
     Indication: Hypertension
     Dosage: 5 MG, QD (DAILY)
     Dates: start: 2023
  10. FOLIC ACID [Concomitant]
     Active Substance: FOLIC ACID
     Indication: Prophylaxis
     Dosage: 5 MG, ONCE EVERY 1 WK
     Dates: start: 2025
  11. CHOLECALCIFEROL [Concomitant]
     Active Substance: CHOLECALCIFEROL
     Indication: Prophylaxis
     Dosage: 30 DROPS, ONCE EVERY 1 WK
     Dates: start: 2025
  12. LOPERAMIDE HYDROCHLORIDE [Concomitant]
     Active Substance: LOPERAMIDE HYDROCHLORIDE
     Indication: Prophylaxis against diarrhoea
     Dosage: 2 MG, AS NEEDED
     Dates: start: 2025
  13. METOCLOPRAMIDE HYDROCHLORIDE [Concomitant]
     Active Substance: METOCLOPRAMIDE HYDROCHLORIDE
     Indication: Prophylaxis of nausea and vomiting
     Dosage: 1 DOSAGE FORM, AS NEEDED
     Dates: start: 2025
  14. ZOFRAN [Concomitant]
     Active Substance: ONDANSETRON HYDROCHLORIDE
     Indication: Prophylaxis of nausea and vomiting
     Dosage: 1 DOSAGE FORM, AS NEEDED
     Dates: start: 2025
  15. GLANDOMED [Concomitant]
     Indication: Prophylaxis
     Dosage: 1 APPLICATION AS NEEDED
     Dates: start: 2025
  16. GLANDOMED [Concomitant]
     Indication: Mucosal inflammation
  17. RISPERDAL [Concomitant]
     Active Substance: RISPERIDONE
     Indication: Restlessness
     Dosage: 1 MG, AS NEEDED
     Dates: start: 2025
  18. RISPERDAL [Concomitant]
     Active Substance: RISPERIDONE
     Indication: Sleep disorder therapy
  19. ACETAN [LISINOPRIL] [Concomitant]
     Indication: Hypertension
     Dosage: 20 MG, AS NEEDED
     Dates: start: 2025
  20. POLYETHYLENE GLYCOL 3350\POTASSIUM CHLORIDE\SODIUM BICARBONATE\SODIUM [Concomitant]
     Active Substance: POLYETHYLENE GLYCOL 3350\POTASSIUM CHLORIDE\SODIUM BICARBONATE\SODIUM CHLORIDE
     Indication: Constipation
     Dosage: 1 DOSAGE FORM, AS NEEDED (SACHET)
     Dates: start: 2025
  21. NOVALGIN (METAMIZOLE SODIUM) [Concomitant]
     Active Substance: METAMIZOLE SODIUM
     Indication: Pain management
     Dosage: 500 MG, AS NEEDED
     Dates: start: 2025
  22. ACETAMINOPHEN [Concomitant]
     Active Substance: ACETAMINOPHEN
     Indication: Pain management
     Dosage: 500 MG, AS NEEDED
     Dates: start: 2025
  23. FILGRASTIM [Concomitant]
     Active Substance: FILGRASTIM
     Indication: Prophylaxis
     Dosage: 0.5 ML, SINGLE (ONCE)
     Dates: start: 20250810, end: 20250810
  24. FILGRASTIM [Concomitant]
     Active Substance: FILGRASTIM
     Indication: Neutropenia
  25. AMLODIPINE [Concomitant]
     Active Substance: AMLODIPINE BESYLATE
     Indication: Hypertension
     Dosage: 5 MG, BID
     Dates: start: 20250801
  26. SULFAMETROLE\TRIMETHOPRIM [Concomitant]
     Active Substance: SULFAMETROLE\TRIMETHOPRIM
     Indication: Antibiotic therapy
     Dosage: 1 DOSAGE FORM, 3 TIMES PER 1WK
     Dates: start: 20250508, end: 20250808
  27. HYPROMELLOSE 2910 (4000 MPA.S) [Concomitant]
     Active Substance: HYPROMELLOSE 2910 (4000 MPA.S)
     Indication: Dry eye
     Dosage: 4 DROPS, DAILY
     Dates: start: 20250725
  28. DEXAMETHASONE [Concomitant]
     Active Substance: DEXAMETHASONE
     Indication: Premedication
     Dosage: 20 MG, 3 TIMES PER MONTH
     Dates: start: 20250627
  29. FAMOTIDINE [Concomitant]
     Active Substance: FAMOTIDINE
     Indication: Premedication
     Dosage: 20 MG 3 TIMES PER MONTH
     Dates: start: 20250627
  30. DIPHENHYDRAMINE HYDROCHLORIDE [Concomitant]
     Active Substance: DIPHENHYDRAMINE HYDROCHLORIDE
     Indication: Premedication
     Dosage: 50 MG 3 TIMES PER MONTH
     Dates: start: 20250627

REACTIONS (2)
  - Polyneuropathy [Not Recovered/Not Resolved]
  - Fatigue [Not Recovered/Not Resolved]

NARRATIVE: CASE EVENT DATE: 20250829
